FAERS Safety Report 20834711 (Version 2)
Quarter: 2022Q4

REPORT INFORMATION
  Report Type: Spontaneous
  Country: GB (occurrence: GB)
  Receive Date: 20220516
  Receipt Date: 20221129
  Transmission Date: 20230112
  Serious: Yes (Life-Threatening, Hospitalization, Other)
  Sender: FDA-Public Use
  Company Number: None

PATIENT
  Age: 20 Year
  Sex: Female
  Weight: 83 kg

DRUGS (2)
  1. TOPAMAX [Suspect]
     Active Substance: TOPIRAMATE
     Indication: Idiopathic intracranial hypertension
     Route: 048
     Dates: start: 20220405, end: 20220410
  2. SERTRALINE [Concomitant]
     Active Substance: SERTRALINE HYDROCHLORIDE
     Indication: Anxiety
     Dates: start: 20170609

REACTIONS (7)
  - Suicide attempt [Recovering/Resolving]
  - Intentional self-injury [Recovering/Resolving]
  - Condition aggravated [Unknown]
  - Feeling abnormal [Recovering/Resolving]
  - Medication error [Unknown]
  - Off label use [Unknown]
  - Product use in unapproved indication [Unknown]

NARRATIVE: CASE EVENT DATE: 20220405
